FAERS Safety Report 13044150 (Version 1)
Quarter: 2016Q4

REPORT INFORMATION
  Report Type: Spontaneous
  Country: US (occurrence: US)
  Receive Date: 20161220
  Receipt Date: 20161220
  Transmission Date: 20170207
  Serious: Yes (Other)
  Sender: FDA-Public Use
  Company Number: US-ROCHE-1015502

PATIENT
  Sex: Male

DRUGS (2)
  1. ZELBORAF [Suspect]
     Active Substance: VEMURAFENIB
     Indication: PRODUCT USED FOR UNKNOWN INDICATION
     Route: 065
  2. ZELBORAF [Suspect]
     Active Substance: VEMURAFENIB
     Dosage: DOSE REDUCED
     Route: 065

REACTIONS (8)
  - Arthralgia [Unknown]
  - Fatigue [Unknown]
  - Rash [Unknown]
  - Electrocardiogram QT prolonged [Unknown]
  - Memory impairment [Unknown]
  - Visual impairment [Unknown]
  - Dyspnoea [Unknown]
  - Alopecia [Unknown]
